FAERS Safety Report 8572920-8 (Version None)
Quarter: 2012Q2

REPORT INFORMATION
  Report Type: 
  Country: None (occurrence: None)
  Receive Date: 20120423
  Receipt Date: 20081208
  Transmission Date: 20120825
  Serious: Yes (Other)
  Sender: FDA-Public Use
  Company Number: PHEH2008US09721

PATIENT

DRUGS (5)
  1. PRILOSEC [Concomitant]
  2. ACYCLOVIR [Concomitant]
  3. EXJADE [Suspect]
     Indication: IRON OVERLOAD
     Dosage: 1500 MG, QD, ORAL
     Route: 048
     Dates: start: 20080812, end: 20081003
  4. EXJADE [Suspect]
     Indication: TRANSFUSION
     Dosage: 1500 MG, QD, ORAL
     Route: 048
     Dates: start: 20080812, end: 20081003
  5. VPHEN [Concomitant]

REACTIONS (1)
  - AGRANULOCYTOSIS [None]
